FAERS Safety Report 18864643 (Version 2)
Quarter: 2021Q1

REPORT INFORMATION
  Report Type: Report from Study
  Country: US (occurrence: US)
  Receive Date: 20210208
  Receipt Date: 20210308
  Transmission Date: 20210420
  Serious: Yes (Death)
  Sender: FDA-Public Use
  Company Number: NVSC2021US029441

PATIENT
  Sex: Male

DRUGS (1)
  1. TASIGNA [Suspect]
     Active Substance: NILOTINIB
     Indication: CHRONIC LEUKAEMIA
     Dosage: 300 MG, BID
     Route: 048
     Dates: start: 201111

REACTIONS (3)
  - Arteriosclerosis [Fatal]
  - Obesity [Fatal]
  - Cardiac failure congestive [Fatal]
